FAERS Safety Report 6362500-7 (Version None)
Quarter: 2009Q3

REPORT INFORMATION
  Report Type: 
  Country: None (occurrence: None)
  Receive Date: 20090918
  Receipt Date: 20090602
  Transmission Date: 20100115
  Serious: No
  Sender: FDA-Public Use
  Company Number: US-ABBOTT-09P-163-0577528-00

PATIENT
  Sex: Female
  Weight: 54.48 kg

DRUGS (2)
  1. HUMIRA [Suspect]
     Indication: RHEUMATOID ARTHRITIS
     Route: 058
     Dates: start: 20080505, end: 20080505
  2. SINGULAIR [Concomitant]
     Indication: SEASONAL ALLERGY

REACTIONS (4)
  - GENERALISED ERYTHEMA [None]
  - PRURITUS [None]
  - RASH [None]
  - SKIN EXFOLIATION [None]
